FAERS Safety Report 4845446-2 (Version None)
Quarter: 2005Q4

REPORT INFORMATION
  Report Type: 
  Country: None (occurrence: None)
  Receive Date: 20051129
  Receipt Date: 20051114
  Transmission Date: 20060501
  Serious: No
  Sender: FDA-Public Use
  Company Number: 2005-133843-NL

PATIENT
  Age: 15 Year
  Sex: Female

DRUGS (2)
  1. NUVARING [Suspect]
     Dosage: DF
  2. LAMOTRIGINE [Concomitant]

REACTIONS (1)
  - EPILEPSY [None]
